FAERS Safety Report 15559033 (Version 1)
Quarter: 2018Q4

REPORT INFORMATION
  Report Type: Spontaneous
  Country: DE (occurrence: DE)
  Receive Date: 20181029
  Receipt Date: 20181029
  Transmission Date: 20190205
  Serious: Yes (Other)
  Sender: FDA-Public Use
  Company Number: DE-TEVA-2018-DE-968493

PATIENT
  Age: 55 Year
  Sex: Female

DRUGS (4)
  1. FEM7- 50 MIKROGRAMM [Suspect]
     Active Substance: ESTRADIOL HEMIHYDRATE
     Indication: OSTEOPOROSIS
     Dosage: 1 DF, QW
     Route: 065
     Dates: start: 20181011, end: 20181012
  2. FEM7- 50 MIKROGRAMM [Suspect]
     Active Substance: ESTRADIOL HEMIHYDRATE
     Indication: MENOPAUSAL SYMPTOMS
  3. KETOTIFEN [Concomitant]
     Active Substance: KETOTIFEN
  4. UTROGEST [Concomitant]
     Active Substance: PROGESTERONE
     Dates: start: 20181011, end: 20181012

REACTIONS (1)
  - Anaphylactoid reaction [Recovered/Resolved]
